FAERS Safety Report 13311919 (Version 1)
Quarter: 2017Q1

REPORT INFORMATION
  Report Type: Spontaneous
  Country: GB (occurrence: GB)
  Receive Date: 20170309
  Receipt Date: 20170309
  Transmission Date: 20170428
  Serious: Yes (Other)
  Sender: FDA-Public Use
  Company Number: GB-SA-2017SA037300

PATIENT
  Age: 59 Year
  Sex: Male

DRUGS (2)
  1. NOVORAPID [Concomitant]
     Active Substance: INSULIN ASPART
  2. LANTUS [Suspect]
     Active Substance: INSULIN GLARGINE
     Indication: TYPE 1 DIABETES MELLITUS
     Route: 065
     Dates: end: 20170221

REACTIONS (3)
  - Rash [Not Recovered/Not Resolved]
  - Hyperhidrosis [Recovered/Resolved with Sequelae]
  - Hot flush [Recovered/Resolved with Sequelae]
